FAERS Safety Report 11038660 (Version 1)
Quarter: 2015Q2

REPORT INFORMATION
  Report Type: Spontaneous
  Country: CH (occurrence: None)
  Receive Date: 20150415
  Receipt Date: 20150415
  Transmission Date: 20150821
  Serious: Yes (Hospitalization)
  Sender: FDA-Public Use
  Company Number: 20150201

PATIENT
  Age: 67 Year
  Sex: Male

DRUGS (8)
  1. AMLOZEK (AMLODIPINE BESILATE) [Concomitant]
  2. HUMALOG(INSULIN LISPRO) [Concomitant]
  3. VENOFER [Suspect]
     Active Substance: IRON SUCROSE
     Indication: ANAEMIA
     Route: 042
     Dates: start: 20141008
  4. POLPRIL(RAMIPRIL) [Concomitant]
  5. HUMALOG N(INSULIN LISPRO PROTAMINE SUSPENSION) [Concomitant]
  6. BISORATIO(BISOPROLOL FUMARATE) [Concomitant]
  7. HEPARIN [Concomitant]
     Active Substance: HEPARIN SODIUM
  8. FUROSEMIDE. [Concomitant]
     Active Substance: FUROSEMIDE

REACTIONS (1)
  - Hepatitis C [None]

NARRATIVE: CASE EVENT DATE: 20150317
